FAERS Safety Report 9799848 (Version 1)
Quarter: 2014Q1

REPORT INFORMATION
  Report Type: Spontaneous
  Country: US (occurrence: US)
  Receive Date: 20140106
  Receipt Date: 20140106
  Transmission Date: 20141002
  Serious: Yes (Death)
  Sender: FDA-Public Use
  Company Number: US-GLAXOSMITHKLINE-A1055169A

PATIENT
  Age: 49 Year
  Sex: Female

DRUGS (7)
  1. LOVAZA [Suspect]
     Indication: HYPERLIPIDAEMIA
     Dosage: 2CAP TWICE PER DAY
     Route: 048
     Dates: start: 201309
  2. VENTOLIN HFA [Suspect]
     Indication: BRONCHITIS
     Dosage: 2PUFF FOUR TIMES PER DAY
     Route: 055
     Dates: start: 20131004
  3. CLONIDINE [Concomitant]
  4. NIASPAN [Concomitant]
  5. HYDROXYZINE HCL [Concomitant]
  6. GEMFIBROZIL [Concomitant]
  7. IRON [Concomitant]

REACTIONS (2)
  - Death [Fatal]
  - Pneumonia [Unknown]
